FAERS Safety Report 11595637 (Version 1)
Quarter: 2015Q4

REPORT INFORMATION
  Report Type: Spontaneous
  Country: AT (occurrence: AT)
  Receive Date: 20151006
  Receipt Date: 20151006
  Transmission Date: 20160304
  Serious: Yes (Other)
  Sender: FDA-Public Use
  Company Number: AT-ROCHE-1641505

PATIENT
  Sex: Male

DRUGS (3)
  1. SERETIDE [Suspect]
     Active Substance: FLUTICASONE FUROATE\SALMETEROL XINAFOATE
     Indication: BRONCHITIS CHRONIC
     Route: 065
     Dates: start: 2011
  2. RIVOTRIL [Suspect]
     Active Substance: CLONAZEPAM
     Indication: PRODUCT USED FOR UNKNOWN INDICATION
     Dosage: 0-0-1
     Route: 065
     Dates: start: 2011
  3. TRITTICO [Suspect]
     Active Substance: TRAZODONE HYDROCHLORIDE
     Indication: PRODUCT USED FOR UNKNOWN INDICATION
     Route: 065
     Dates: start: 2011, end: 2015

REACTIONS (11)
  - Somnolence [Recovered/Resolved]
  - Pain in extremity [Recovered/Resolved]
  - Hypertension [Unknown]
  - Fatigue [Recovered/Resolved]
  - Nasopharyngitis [Not Recovered/Not Resolved]
  - Dysphagia [Recovered/Resolved]
  - Candida infection [Recovered/Resolved]
  - Aspiration [Recovered/Resolved]
  - Nasopharyngitis [Recovered/Resolved]
  - Abdominal pain upper [Recovered/Resolved]
  - Tongue neoplasm malignant stage unspecified [Recovered/Resolved]

NARRATIVE: CASE EVENT DATE: 2011
